FAERS Safety Report 22284285 (Version 1)
Quarter: 2023Q2

REPORT INFORMATION
  Report Type: Spontaneous
  Country: US (occurrence: US)
  Receive Date: 20230504
  Receipt Date: 20230504
  Transmission Date: 20230722
  Serious: No
  Sender: FDA-Public Use
  Company Number: US-TEVA-2023-US-2880024

PATIENT
  Age: 65 Year
  Sex: Female

DRUGS (1)
  1. MUPIROCIN [Suspect]
     Active Substance: MUPIROCIN
     Indication: Nasal inflammation
     Route: 065
     Dates: start: 202302

REACTIONS (4)
  - Feeling hot [Unknown]
  - Pain [Unknown]
  - Product quality issue [Unknown]
  - Product use issue [Unknown]

NARRATIVE: CASE EVENT DATE: 20230101
